FAERS Safety Report 8454688-9 (Version None)
Quarter: 2012Q2

REPORT INFORMATION
  Report Type: 
  Country: None (occurrence: None)
  Receive Date: 20120621
  Receipt Date: 20120614
  Transmission Date: 20120825
  Serious: Yes (Other)
  Sender: FDA-Public Use
  Company Number: US-AMGEN-USASP2012037354

PATIENT

DRUGS (1)
  1. ARANESP [Suspect]
     Indication: ANAEMIA
     Dosage: UNK

REACTIONS (1)
  - NEOPLASM MALIGNANT [None]
